FAERS Safety Report 13873815 (Version 3)
Quarter: 2017Q3

REPORT INFORMATION
  Report Type: Spontaneous
  Country: TR (occurrence: TR)
  Receive Date: 20170816
  Receipt Date: 20170913
  Transmission Date: 20171127
  Serious: Yes (Other)
  Sender: FDA-Public Use
  Company Number: TR-BAYER-2017-150778

PATIENT
  Age: 32 Year
  Sex: Female
  Weight: 90 kg

DRUGS (2)
  1. VENLAFAXINE [Concomitant]
     Active Substance: VENLAFAXINE HYDROCHLORIDE
     Indication: DEPRESSION
     Dosage: 75 MG, QD
     Route: 048
     Dates: start: 2016
  2. QLAIRISTA [Suspect]
     Active Substance: DIENOGEST\ESTRADIOL VALERATE
     Indication: MENSTRUATION IRREGULAR
     Dosage: UNK
     Route: 048
     Dates: start: 20170801

REACTIONS (8)
  - Off label use [None]
  - Pain in extremity [Not Recovered/Not Resolved]
  - Venous thrombosis [Not Recovered/Not Resolved]
  - Hypoaesthesia [None]
  - Emotional distress [None]
  - Product use in unapproved indication [None]
  - Adverse event [None]
  - Peripheral swelling [Not Recovered/Not Resolved]

NARRATIVE: CASE EVENT DATE: 20170801
